FAERS Safety Report 8940642 (Version 3)
Quarter: 2012Q4

REPORT INFORMATION
  Report Type: 
  Country: US (occurrence: US)
  Receive Date: 20121203
  Receipt Date: 20121219
  Transmission Date: 20130627
  Serious: Yes (Other)
  Sender: FDA-Public Use
  Company Number: PHEH2012US022967

PATIENT
  Age: 50 Year
  Sex: Female
  Weight: 54.42 kg

DRUGS (2)
  1. GILENYA [Suspect]
     Indication: MULTIPLE SCLEROSIS
     Dosage: 0.5 mg, every day
     Route: 048
     Dates: start: 20121120, end: 20121120
  2. GILENYA [Suspect]
     Dosage: 0.5 mg, every day
     Route: 048
     Dates: start: 20121213

REACTIONS (2)
  - Bundle branch block right [Recovered/Resolved]
  - Heart rate irregular [Not Recovered/Not Resolved]
